FAERS Safety Report 7648171-8 (Version None)
Quarter: 2011Q3

REPORT INFORMATION
  Report Type: 
  Country: None (occurrence: None)
  Receive Date: 20110801
  Receipt Date: 20110727
  Transmission Date: 20111222
  Serious: Yes (Hospitalization)
  Sender: FDA-Public Use
  Company Number: US-B.I. PHARMACEUTICALS,INC./RIDGEFIELD-2011-BP-18584BP

PATIENT
  Sex: Male

DRUGS (1)
  1. PRADAXA [Suspect]
     Indication: THROMBOSIS
     Dosage: 300 MG
     Route: 048
     Dates: start: 20110624, end: 20110722

REACTIONS (4)
  - CHEST PAIN [None]
  - CEREBROVASCULAR ACCIDENT [None]
  - HEADACHE [None]
  - VISION BLURRED [None]
